FAERS Safety Report 9244771 (Version 1)
Quarter: 2013Q2

REPORT INFORMATION
  Report Type: Spontaneous
  Country: US (occurrence: US)
  Receive Date: 20130422
  Receipt Date: 20130422
  Transmission Date: 20140414
  Serious: No
  Sender: FDA-Public Use
  Company Number: US-JNJFOC-20130314756

PATIENT
  Age: 41 Year
  Sex: Male

DRUGS (2)
  1. INVEGA SUSTENNA [Suspect]
     Indication: PRODUCT USED FOR UNKNOWN INDICATION
     Route: 030
     Dates: end: 20130304
  2. SEROQUEL [Concomitant]
     Route: 065

REACTIONS (3)
  - Abscess [Unknown]
  - Treatment noncompliance [Unknown]
  - Injection site pain [Not Recovered/Not Resolved]
